FAERS Safety Report 7015350-2 (Version None)
Quarter: 2010Q3

REPORT INFORMATION
  Report Type: 
  Country: None (occurrence: None)
  Receive Date: 20100924
  Receipt Date: 20100924
  Transmission Date: 20110219
  Serious: Yes (Death)
  Sender: FDA-Public Use
  Company Number: None

PATIENT
  Age: 57 Year
  Sex: Female
  Weight: 62 kg

DRUGS (2)
  1. WARFARIN SODIUM [Suspect]
     Indication: ANTICOAGULANT THERAPY
     Dosage: 2.5-7.5 MG QDAY PO
     Route: 048
     Dates: start: 20100706, end: 20100725
  2. BIVALIRUDIN [Suspect]
     Indication: ANTICOAGULANT THERAPY
     Dosage: 0.02MG/KG/HR TITRATE TO GOAL IV DRIP
     Route: 041
     Dates: start: 20100703, end: 20100725

REACTIONS (5)
  - BRAIN OEDEMA [None]
  - BRAIN STEM SYNDROME [None]
  - CEREBRAL HAEMORRHAGE [None]
  - DEPRESSED LEVEL OF CONSCIOUSNESS [None]
  - THALAMUS HAEMORRHAGE [None]
